FAERS Safety Report 18447013 (Version 1)
Quarter: 2020Q4

REPORT INFORMATION
  Report Type: Spontaneous
  Country: US (occurrence: US)
  Receive Date: 20201030
  Receipt Date: 20201030
  Transmission Date: 20210114
  Serious: No
  Sender: FDA-Public Use
  Company Number: None

PATIENT
  Age: 27 Year
  Sex: Male

DRUGS (1)
  1. GENTAMICIN SULFATE 40 MG/ML FRESENIUS KABI USA [Suspect]
     Active Substance: GENTAMICIN SULFATE
     Indication: CYSTIC FIBROSIS
     Route: 042
     Dates: start: 20200908, end: 20201007

REACTIONS (1)
  - Ototoxicity [None]

NARRATIVE: CASE EVENT DATE: 202009
